FAERS Safety Report 12337047 (Version 1)
Quarter: 2016Q2

REPORT INFORMATION
  Report Type: Spontaneous
  Country: CA (occurrence: CA)
  Receive Date: 20160505
  Receipt Date: 20160505
  Transmission Date: 20160815
  Serious: Yes (Death)
  Sender: FDA-Public Use
  Company Number: CA-009507513-1605CAN000110

PATIENT
  Sex: Male

DRUGS (1)
  1. DIFICID [Suspect]
     Active Substance: FIDAXOMICIN
     Dosage: UNK
     Route: 048

REACTIONS (1)
  - Drug ineffective [Fatal]
